FAERS Safety Report 7787196-9 (Version None)
Quarter: 2011Q3

REPORT INFORMATION
  Report Type: 
  Country: None (occurrence: None)
  Receive Date: 20110927
  Receipt Date: 20110916
  Transmission Date: 20111222
  Serious: Yes (Disabling, Other)
  Sender: FDA-Public Use
  Company Number: 1043852

PATIENT
  Age: 67 Year
  Sex: Male
  Weight: 91.36 kg

DRUGS (12)
  1. (ATARAX /000584701/) [Concomitant]
  2. FOLIC ACID [Concomitant]
  3. LOPERAMIDE HCL [Concomitant]
  4. QUESTRAN [Concomitant]
  5. BETAMETHASONE VALERATE [Concomitant]
  6. KETOCONAZOLE [Concomitant]
  7. (ALGESAL /00443701/) [Concomitant]
  8. HYDROXOCOBALAMIN [Concomitant]
  9. METHOTREXATE [Suspect]
     Indication: CROHN'S DISEASE
     Dates: start: 20110909
  10. ASACOL [Concomitant]
  11. FELODIPINE [Concomitant]
  12. ACETAMINOPHEN [Concomitant]

REACTIONS (3)
  - FATIGUE [None]
  - CHEST DISCOMFORT [None]
  - DYSPNOEA [None]
